FAERS Safety Report 7270988-2 (Version None)
Quarter: 2011Q1

REPORT INFORMATION
  Report Type: 
  Country: None (occurrence: None)
  Receive Date: 20110202
  Receipt Date: 20110121
  Transmission Date: 20110831
  Serious: Yes (Hospitalization, Other)
  Sender: FDA-Public Use
  Company Number: BR-ELI_LILLY_AND_COMPANY-BR201010005291

PATIENT
  Sex: Male
  Weight: 84 kg

DRUGS (8)
  1. HUMULIN N [Suspect]
     Indication: TYPE 2 DIABETES MELLITUS
     Dosage: UNK, UNKNOWN
     Route: 065
  2. OMEPRAZOLE [Concomitant]
     Dosage: 20 MG, EACH MORNING
     Route: 048
     Dates: start: 20050101
  3. GLUCOFORMIN [Concomitant]
     Indication: BLOOD DISORDER
     Dosage: 850 MG, 2/D
     Route: 048
  4. ENALAPRIL MALEATE [Concomitant]
     Dosage: UNK, 2/D
     Route: 048
     Dates: start: 20050101
  5. HUMALOG [Suspect]
     Indication: TYPE 2 DIABETES MELLITUS
     Dosage: UNK, UNKNOWN
     Route: 065
  6. ASPIRIN [Concomitant]
     Dosage: 100 MG, 2/D
     Route: 048
     Dates: start: 20050101
  7. LIPITOR [Concomitant]
     Dosage: 40 MG, DAILY (1/D)
     Route: 048
     Dates: start: 20050101
  8. NATRILIX /00340101/ [Concomitant]
     Dosage: 1.5 MG, EACH MORNING
     Route: 048
     Dates: start: 20050101

REACTIONS (1)
  - HEART VALVE REPLACEMENT [None]
